FAERS Safety Report 17197905 (Version 1)
Quarter: 2019Q4

REPORT INFORMATION
  Report Type: Report from Study
  Country: FR (occurrence: FR)
  Receive Date: 20191224
  Receipt Date: 20191224
  Transmission Date: 20200122
  Serious: Yes (Hospitalization, Other)
  Sender: FDA-Public Use
  Company Number: FR-ROCHE-1439633

PATIENT
  Age: 43 Year
  Sex: Male
  Weight: 64 kg

DRUGS (7)
  1. VISMODEGIB. [Suspect]
     Active Substance: VISMODEGIB
     Indication: CHONDROSARCOMA
     Dosage: START DATE OF COURSE 30: 05/MAY/2014. LAST DOSE PRIOR TO SAE ON 12/JUN/2014. TOTAL DOSE ADMINISTERED
     Route: 048
     Dates: start: 20120119, end: 20140612
  2. VISMODEGIB. [Suspect]
     Active Substance: VISMODEGIB
     Dosage: COURSE 6
     Route: 048
     Dates: start: 20120608
  3. VISMODEGIB. [Suspect]
     Active Substance: VISMODEGIB
     Dosage: COURSE 7
     Route: 048
     Dates: start: 20120706
  4. VISMODEGIB. [Suspect]
     Active Substance: VISMODEGIB
     Dosage: COURSE 9
     Route: 048
     Dates: start: 20120831
  5. VISMODEGIB. [Suspect]
     Active Substance: VISMODEGIB
     Dosage: COURSE 2
     Route: 048
     Dates: start: 20120215
  6. VISMODEGIB. [Suspect]
     Active Substance: VISMODEGIB
     Dosage: COURSE 30
     Route: 048
     Dates: start: 20140505
  7. VISMODEGIB. [Suspect]
     Active Substance: VISMODEGIB
     Dosage: COURSE 5
     Route: 048
     Dates: start: 20120511

REACTIONS (2)
  - Acute kidney injury [Unknown]
  - Vascular access complication [Unknown]

NARRATIVE: CASE EVENT DATE: 20140612
